FAERS Safety Report 7859185-7 (Version None)
Quarter: 2011Q4

REPORT INFORMATION
  Report Type: 
  Country: None (occurrence: None)
  Receive Date: 20111025
  Receipt Date: 20111010
  Transmission Date: 20120403
  Serious: Yes (Hospitalization)
  Sender: FDA-Public Use
  Company Number: 2011-01190

PATIENT
  Age: 81 Year
  Sex: Female
  Weight: 86.1834 kg

DRUGS (6)
  1. ESTROGENS CONJUGATED (PREMARIN) (UNKNOWN) [Concomitant]
  2. MEFENAMIC ACID (ADVIL) (UNKNOWN) [Concomitant]
  3. LOSARTAN (UNKNOWN) [Suspect]
     Indication: BLOOD PRESSURE INCREASED
     Dosage: ORAL
     Route: 048
     Dates: start: 20110703, end: 20110703
  4. METRONIDAZOLE [Suspect]
     Indication: GASTROINTESTINAL DISORDER
     Dosage: 500 MG (250 MG, 2 IN 1 D), ORAL
     Route: 048
     Dates: start: 20110825, end: 20110825
  5. LANSOPRAZOLE (PREVACIDE) (UNKNOWN) [Concomitant]
  6. AMLODIOPINE BESYLATE (NORVASC) (UNKNOWN) [Concomitant]

REACTIONS (9)
  - INSOMNIA [None]
  - BLOOD PRESSURE INCREASED [None]
  - TINNITUS [None]
  - RESTLESSNESS [None]
  - BLISTER [None]
  - FEELING DRUNK [None]
  - NAUSEA [None]
  - THROMBOTIC STROKE [None]
  - REACTION TO FOOD ADDITIVE [None]
